FAERS Safety Report 9598871 (Version 1)
Quarter: 2013Q4

REPORT INFORMATION
  Report Type: Spontaneous
  Country: US (occurrence: US)
  Receive Date: 20131004
  Receipt Date: 20131004
  Transmission Date: 20140711
  Serious: No
  Sender: FDA-Public Use
  Company Number: US-AMGEN-USASP2013026515

PATIENT
  Age: 52 Year
  Sex: Female
  Weight: 81.63 kg

DRUGS (8)
  1. ENBREL [Suspect]
     Indication: PRODUCT USED FOR UNKNOWN INDICATION
     Dosage: 50 MG, QWK
     Route: 058
     Dates: start: 2012
  2. METHOTREXATE [Concomitant]
     Dosage: 2.5 MG, UNK
  3. MELOXICAM [Concomitant]
     Dosage: 7.5 MG, UNK
  4. MULTIVITAMINS, PLAIN [Concomitant]
     Dosage: UNK
  5. FISH OIL [Concomitant]
     Dosage: UNK
  6. PREDNISONE [Concomitant]
     Dosage: 10 MG, UNK
  7. FOLIC ACID [Concomitant]
     Dosage: UNK
  8. HYDROCODONE/APAP [Concomitant]
     Dosage: 5-300 MG, UNK

REACTIONS (1)
  - Drug effect decreased [Unknown]
